FAERS Safety Report 21941268 (Version 1)
Quarter: 2023Q1

REPORT INFORMATION
  Report Type: Report from Study
  Country: US (occurrence: US)
  Receive Date: 20230202
  Receipt Date: 20230202
  Transmission Date: 20230418
  Serious: No
  Sender: FDA-Public Use
  Company Number: US-EXELIXIS-CABO-22054094

PATIENT
  Sex: Male

DRUGS (2)
  1. CABOMETYX [Suspect]
     Active Substance: CABOZANTINIB S-MALATE
     Indication: Bone cancer
     Dosage: 60 MG, QD (3 TABLETS OF 20 MG)
     Route: 048
     Dates: start: 20220126
  2. CABOMETYX [Suspect]
     Active Substance: CABOZANTINIB S-MALATE
     Indication: Chondrosarcoma
     Dosage: 60MG/40MG (3 TABLETS OF 20 MG ON MONDAY AND THURSDAY AND 2 TABLETS PF 20 MG ON TUESDAY, WEDNESDAY, F
     Route: 048

REACTIONS (5)
  - Wound [Not Recovered/Not Resolved]
  - Pelvic pain [Unknown]
  - Abdominal pain [Unknown]
  - Impaired healing [Not Recovered/Not Resolved]
  - Off label use [Unknown]
